FAERS Safety Report 19714182 (Version 1)
Quarter: 2021Q3

REPORT INFORMATION
  Report Type: Spontaneous
  Country: US (occurrence: US)
  Receive Date: 20210818
  Receipt Date: 20210818
  Transmission Date: 20211014
  Serious: No
  Sender: FDA-Public Use
  Company Number: US-DRREDDYS-SPO/USA/21/0138771

PATIENT
  Age: 37 Year
  Sex: Female
  Weight: 66 kg

DRUGS (2)
  1. SUMATRIPTAN SUCCINATE TABLETS [Suspect]
     Active Substance: SUMATRIPTAN SUCCINATE
     Indication: MIGRAINE
     Dosage: MORE THAN ONE TABLET DURING MY 36 HOUR TO 4 DAY EPISODE
     Dates: start: 202011, end: 202107
  2. SUMATRIPTAN SUCCINATE TABLETS [Suspect]
     Active Substance: SUMATRIPTAN SUCCINATE
     Dates: start: 202011, end: 202107

REACTIONS (11)
  - Incorrect dose administered [None]
  - Product quality issue [Unknown]
  - Tinnitus [Unknown]
  - Hypoacusis [Unknown]
  - Drug ineffective [Unknown]
  - Migraine [Unknown]
  - Insomnia [Unknown]
  - Irritability [Unknown]
  - Stress [Unknown]
  - Impaired quality of life [Unknown]
  - Off label use [Unknown]
